FAERS Safety Report 5487766-7 (Version None)
Quarter: 2007Q4

REPORT INFORMATION
  Report Type: 
  Country: None (occurrence: None)
  Receive Date: 20071017
  Receipt Date: 20071009
  Transmission Date: 20080405
  Serious: Yes (Hospitalization)
  Sender: FDA-Public Use
  Company Number: US-KINGPHARMUSA00001-K200701309

PATIENT

DRUGS (6)
  1. RAMIPRIL [Suspect]
     Dosage: 5 MG, BID
     Route: 048
     Dates: start: 20070124, end: 20070224
  2. COROPRES [Interacting]
     Dosage: 6.25 MG, BID
     Route: 048
     Dates: start: 20070124, end: 20070224
  3. DIGOXIN [Interacting]
     Dosage: UNK, UNK
     Route: 048
     Dates: start: 20070101, end: 20070224
  4. SEGURIL /00032601/ [Concomitant]
     Dosage: 40 MG, UNK
     Route: 048
  5. SINTROM UNO GEIGY IMG [Concomitant]
     Dosage: UNK, QD
     Route: 048
  6. SERETIDE /01420901/ [Concomitant]
     Dosage: 1 INH, BID
     Dates: start: 20070208

REACTIONS (3)
  - DRUG INTERACTION [None]
  - HYPOTENSION [None]
  - LOSS OF CONSCIOUSNESS [None]
